FAERS Safety Report 16189168 (Version 2)
Quarter: 2019Q2

REPORT INFORMATION
  Report Type: Spontaneous
  Country: US (occurrence: US)
  Receive Date: 20190412
  Receipt Date: 20190418
  Transmission Date: 20190711
  Serious: No
  Sender: FDA-Public Use
  Company Number: US-AMGEN INC.-USASP2019051452

PATIENT
  Age: 29 Year
  Sex: Female

DRUGS (2)
  1. BOTOX [Concomitant]
     Active Substance: ONABOTULINUMTOXINA
     Dosage: UNK
  2. AIMOVIG [Suspect]
     Active Substance: ERENUMAB-AOOE
     Indication: MIGRAINE PROPHYLAXIS
     Dosage: 70 MILLIGRAM, QMO
     Route: 065
     Dates: start: 20190323

REACTIONS (12)
  - Hypoglycaemia [Recovering/Resolving]
  - Gastrointestinal motility disorder [Unknown]
  - Abdominal distension [Unknown]
  - Influenza like illness [Unknown]
  - Feeling abnormal [Unknown]
  - Fatigue [Unknown]
  - Asthenia [Unknown]
  - Abdominal pain upper [Unknown]
  - Constipation [Unknown]
  - Discomfort [Unknown]
  - Muscle fatigue [Unknown]
  - Chills [Unknown]

NARRATIVE: CASE EVENT DATE: 2019
